FAERS Safety Report 5607121-6 (Version None)
Quarter: 2008Q1

REPORT INFORMATION
  Report Type: 
  Country: None (occurrence: None)
  Receive Date: 20080129
  Receipt Date: 20080118
  Transmission Date: 20080703
  Serious: Yes (Death)
  Sender: FDA-Public Use
  Company Number: GB-PFIZER INC-2008001464

PATIENT
  Sex: Female
  Weight: 97.8 kg

DRUGS (3)
  1. EXUBERA [Suspect]
     Indication: DIABETES MELLITUS
     Route: 055
     Dates: start: 20070919, end: 20071205
  2. DRUG, UNSPECIFIED [Concomitant]
  3. DOXAZOSIN [Concomitant]
     Indication: HEADACHE
     Route: 048

REACTIONS (1)
  - EMBOLISM [None]
